FAERS Safety Report 15918309 (Version 2)
Quarter: 2019Q1

REPORT INFORMATION
  Report Type: Report from Study
  Country: ZA (occurrence: ZA)
  Receive Date: 20190205
  Receipt Date: 20190222
  Transmission Date: 20190417
  Serious: Yes (Hospitalization)
  Sender: FDA-Public Use
  Company Number: ZA-SA-2018SA248293

PATIENT
  Age: 53 Year
  Sex: Female

DRUGS (13)
  1. INSULIN GLULISINE [Suspect]
     Active Substance: INSULIN GLULISINE
     Indication: TYPE 2 DIABETES MELLITUS
     Dosage: 10 U, BID
     Dates: start: 20180828
  2. OMEZ [OMEPRAZOLE] [Concomitant]
     Active Substance: OMEPRAZOLE
     Dosage: AB-20 MG, QD
  3. ATORVASTATIN UNICORN [Concomitant]
     Active Substance: ATORVASTATIN
     Dosage: 20 U, HS
  4. INSULIN GLULISINE [Suspect]
     Active Substance: INSULIN GLULISINE
     Dosage: 14 UNITS BEFORE BREAKFAST | 10 UNITS BEFORE SUPPER, BID
     Dates: start: 20180830
  5. BE-TABS PREDNISONE [Concomitant]
     Active Substance: PREDNISONE
     Dosage: AB-5 MG
  6. PANADO [Concomitant]
     Active Substance: ACETAMINOPHEN
     Dosage: AB-500 MG
  7. AUSTELL TRAMADOL [Concomitant]
     Active Substance: TRAMADOL HYDROCHLORIDE
     Dosage: AB-50 MG
  8. OPTISULIN (INSULIN GLARGINE) [Suspect]
     Active Substance: INSULIN GLARGINE
     Dosage: 42 U, HS
     Dates: start: 20180830
  9. OPTISULIN (INSULIN GLARGINE) [Suspect]
     Active Substance: INSULIN GLARGINE
     Dosage: 21 UNITS BEFORE BREAKFAST AND 25 UNITS AT BEDTIME, BID
     Dates: start: 20190130
  10. COXFLAM [Concomitant]
     Active Substance: MELOXICAM
     Dosage: AB-15 MG
  11. CYMBALTA [Concomitant]
     Active Substance: DULOXETINE HYDROCHLORIDE
     Dosage: BT-60 MG
  12. OPTISULIN (INSULIN GLARGINE) [Suspect]
     Active Substance: INSULIN GLARGINE
     Dosage: 12 U, HS
     Dates: start: 20180828
  13. METFORMIN [Concomitant]
     Active Substance: METFORMIN HYDROCHLORIDE
     Dosage: BB-1000 MG | BS-1000 MG, BID
     Dates: start: 20180830

REACTIONS (9)
  - Disorientation [Unknown]
  - Hyperhidrosis [Unknown]
  - Glycosylated haemoglobin increased [Unknown]
  - Chills [Unknown]
  - Dehydration [Recovered/Resolved]
  - Vomiting [Recovered/Resolved]
  - Diarrhoea [Recovered/Resolved]
  - Dizziness [Unknown]
  - Off label use [Unknown]

NARRATIVE: CASE EVENT DATE: 20190126
